FAERS Safety Report 22524434 (Version 1)
Quarter: 2023Q2

REPORT INFORMATION
  Report Type: Spontaneous
  Country: US (occurrence: US)
  Receive Date: 20230606
  Receipt Date: 20230606
  Transmission Date: 20230722
  Serious: Yes (Other)
  Sender: FDA-Public Use
  Company Number: US-MLMSERVICE-20230522-4297146-1

PATIENT

DRUGS (1)
  1. TACROLIMUS [Suspect]
     Active Substance: TACROLIMUS
     Indication: Product used for unknown indication
     Dosage: UNK
     Route: 065
     Dates: start: 2011

REACTIONS (3)
  - Glomerulonephritis [Recovering/Resolving]
  - Cryoglobulinaemia [Recovering/Resolving]
  - Lacrimal gland enlargement [Recovering/Resolving]

NARRATIVE: CASE EVENT DATE: 20170101
